FAERS Safety Report 7623528-X (Version None)
Quarter: 2011Q3

REPORT INFORMATION
  Report Type: 
  Country: None (occurrence: None)
  Receive Date: 20110720
  Receipt Date: 20110715
  Transmission Date: 20111222
  Serious: No
  Sender: FDA-Public Use
  Company Number: US-TEVA-291029USA

PATIENT
  Sex: Female
  Weight: 73.548 kg

DRUGS (3)
  1. PLAN B ONE-STEP [Suspect]
     Indication: POST COITAL CONTRACEPTION
     Dosage: 1.5 MILLIGRAM;
     Route: 048
     Dates: start: 20110713, end: 20110713
  2. DEPO-PROVERA [Suspect]
     Indication: CONTRACEPTION
     Dates: start: 20100101, end: 20110101
  3. BIRTH CONTROL PILL [Suspect]
     Indication: CONTRACEPTION
     Route: 048
     Dates: start: 20110101

REACTIONS (1)
  - ABDOMINAL PAIN [None]
